FAERS Safety Report 14619164 (Version 1)
Quarter: 2018Q1

REPORT INFORMATION
  Report Type: Spontaneous
  Country: PT (occurrence: PT)
  Receive Date: 20180309
  Receipt Date: 20180309
  Transmission Date: 20180509
  Serious: Yes (Other)
  Sender: FDA-Public Use
  Company Number: PT-AUROBINDO-AUR-APL-2018-012539

PATIENT
  Age: 39 Year
  Sex: Male

DRUGS (1)
  1. AMOXICILLIN+CLAVULANIC ACID FILM-COATED TABLETS [Suspect]
     Active Substance: AMOXICILLIN\CLAVULANIC ACID
     Indication: PRODUCT USED FOR UNKNOWN INDICATION
     Dosage: UNK
     Route: 048
     Dates: start: 20150101

REACTIONS (5)
  - Rash maculo-papular [Recovered/Resolved]
  - Rash pruritic [Recovered/Resolved]
  - Lip oedema [Recovered/Resolved]
  - Rash erythematous [Recovered/Resolved]
  - Face oedema [Recovered/Resolved]

NARRATIVE: CASE EVENT DATE: 20150101
